FAERS Safety Report 7581931-0 (Version None)
Quarter: 2011Q2

REPORT INFORMATION
  Report Type: 
  Country: None (occurrence: None)
  Receive Date: 20110629
  Receipt Date: 20110617
  Transmission Date: 20111010
  Serious: Yes (Death, Life-Threatening)
  Sender: FDA-Public Use
  Company Number: SE-MYLANLABS-2011S1012561

PATIENT
  Age: 60 Year
  Sex: Male

DRUGS (1)
  1. CIPROFLOXACIN [Suspect]
     Indication: URINARY TRACT INFECTION

REACTIONS (3)
  - SUDDEN DEATH [None]
  - SEPSIS [None]
  - CARDIAC ARREST [None]
